FAERS Safety Report 8851804 (Version 3)
Quarter: 2012Q4

REPORT INFORMATION
  Report Type: 
  Country: US (occurrence: US)
  Receive Date: 20121022
  Receipt Date: 20121204
  Transmission Date: 20130627
  Serious: No
  Sender: FDA-Public Use
  Company Number: US-PFIZER INC-2012259453

PATIENT
  Age: 60 Year
  Sex: Female
  Weight: 63 kg

DRUGS (11)
  1. PROTONIX [Suspect]
     Indication: PANCREATITIS
     Dosage: 40 mg, daily (QD)
     Dates: start: 2005, end: 201209
  2. PANTOPRAZOLE [Suspect]
     Indication: PANCREATITIS
     Dosage: UNK
  3. NEXIUM [Suspect]
     Indication: PANCREATITIS
     Dosage: UNK
  4. PRILOSEC [Suspect]
     Indication: PANCREATITIS
     Dosage: UNK
  5. LISINOPRIL [Concomitant]
     Indication: BLOOD PRESSURE HIGH
     Dosage: 2.5 mg, daily
  6. METFORMIN HYDROCHLORIDE [Concomitant]
     Indication: DIABETES
     Dosage: 500 mg, 2x/day
  7. TRICOR [Concomitant]
     Dosage: 134 mg, 1x/day
  8. ZOCOR [Concomitant]
     Dosage: 40 mg, 1x/day
  9. MORPHINE SULFATE [Concomitant]
     Dosage: 30 mg, 2x/day
  10. HYDROCODONE [Concomitant]
     Dosage: UNK
  11. HYDROCODONE W/ACETAMINOPHEN [Concomitant]
     Dosage: 10/325 mg 1-2 TID prn

REACTIONS (2)
  - Off label use [Unknown]
  - Drug ineffective [Unknown]
